FAERS Safety Report 4539495-1 (Version None)
Quarter: 2004Q4

REPORT INFORMATION
  Report Type: 
  Country: None (occurrence: None)
  Receive Date: 20041222
  Receipt Date: 20041215
  Transmission Date: 20050328
  Serious: Yes (Life-Threatening, Hospitalization)
  Sender: FDA-Public Use
  Company Number: 2004-BP-09225BR

PATIENT
  Age: 74 Year
  Sex: Male
  Weight: 59.3 kg

DRUGS (2)
  1. MICARDIS [Suspect]
     Indication: HYPERTENSION
     Dosage: NR (80 MG, NA); PO
     Route: 048
  2. DIGOXIN [Suspect]
     Indication: CARDIAC FAILURE CONGESTIVE
     Dosage: 0.25 MG (0,25 MG, NR); PO
     Route: 048
     Dates: start: 20040830, end: 20040903

REACTIONS (2)
  - CARDIAC FAILURE CONGESTIVE [None]
  - THERAPEUTIC AGENT TOXICITY [None]
